FAERS Safety Report 7774829-6 (Version None)
Quarter: 2011Q3

REPORT INFORMATION
  Report Type: 
  Country: None (occurrence: None)
  Receive Date: 20110923
  Receipt Date: 20110914
  Transmission Date: 20111222
  Serious: Yes (Hospitalization)
  Sender: FDA-Public Use
  Company Number: CA-JNJFOC-20110906153

PATIENT
  Sex: Male

DRUGS (2)
  1. SIMPONI [Suspect]
     Indication: RHEUMATOID ARTHRITIS
     Route: 058
     Dates: start: 20110808
  2. SIMPONI [Suspect]
     Route: 058
     Dates: start: 20100408

REACTIONS (3)
  - WEIGHT DECREASED [None]
  - DYSPNOEA [None]
  - PULMONARY MASS [None]
